FAERS Safety Report 4281567-3 (Version None)
Quarter: 2004Q1

REPORT INFORMATION
  Report Type: 
  Country: None (occurrence: None)
  Receive Date: 20040129
  Receipt Date: 20040120
  Transmission Date: 20041129
  Serious: Yes (Hospitalization)
  Sender: FDA-Public Use
  Company Number: PHBS2004JP01120

PATIENT
  Age: 32 Year
  Sex: Female

DRUGS (3)
  1. NEORAL [Suspect]
     Indication: SYSTEMIC LUPUS ERYTHEMATOSUS
     Dosage: 25 MG, BID
     Route: 048
     Dates: start: 20031201
  2. NEORAL [Suspect]
     Dosage: 100 MG/D
     Route: 048
     Dates: start: 20040108, end: 20040109
  3. PREDNISOLONE [Concomitant]
     Route: 048

REACTIONS (4)
  - ABDOMINAL PAIN [None]
  - ASCITES [None]
  - CONVULSION [None]
  - TOXIC INDUCED ENCEPHALOPATHY [None]
